FAERS Safety Report 23033258 (Version 1)
Quarter: 2023Q4

REPORT INFORMATION
  Report Type: Spontaneous
  Country: US (occurrence: US)
  Receive Date: 20231005
  Receipt Date: 20231005
  Transmission Date: 20240110
  Serious: Yes (Other)
  Sender: FDA-Public Use
  Company Number: US-AMGEN-USASP2023174586

PATIENT
  Age: 46 Year
  Sex: Female

DRUGS (1)
  1. TAVNEOS [Suspect]
     Active Substance: AVACOPAN
     Indication: Microscopic polyangiitis
     Dosage: 3 DOSAGE FORM, BID
     Route: 065
     Dates: start: 20220829, end: 20230808

REACTIONS (1)
  - Cervix carcinoma [Unknown]
